FAERS Safety Report 18864836 (Version 1)
Quarter: 2021Q1

REPORT INFORMATION
  Report Type: Spontaneous
  Country: US (occurrence: US)
  Receive Date: 20210209
  Receipt Date: 20210209
  Transmission Date: 20210420
  Serious: Yes (Other)
  Sender: FDA-Public Use
  Company Number: US-SA-2021SA033352

PATIENT
  Age: 52 Year
  Sex: Female

DRUGS (1)
  1. ZANTAC [Suspect]
     Active Substance: RANITIDINE HYDROCHLORIDE
     Indication: GASTROOESOPHAGEAL REFLUX DISEASE
     Dosage: UNKNOWN AT THIS TIME
     Dates: start: 200501, end: 201001

REACTIONS (5)
  - Cervix carcinoma stage 0 [Unknown]
  - Gastrointestinal carcinoma [Unknown]
  - Gastric cancer [Unknown]
  - Ovarian cancer [Unknown]
  - Small intestine carcinoma [Unknown]

NARRATIVE: CASE EVENT DATE: 20100101
